FAERS Safety Report 6793883-1 (Version None)
Quarter: 2010Q2

REPORT INFORMATION
  Report Type: 
  Country: None (occurrence: None)
  Receive Date: 20100624
  Receipt Date: 20100331
  Transmission Date: 20101027
  Serious: Yes (Other)
  Sender: FDA-Public Use
  Company Number: US-MYLANLABS-2010S1002752

PATIENT
  Age: 85 Year
  Sex: Female

DRUGS (3)
  1. CLOZAPINE [Suspect]
     Route: 048
     Dates: end: 20100201
  2. CLOZAPINE [Suspect]
     Route: 048
     Dates: end: 20100201
  3. CLOZAPINE [Suspect]
     Route: 048
     Dates: end: 20100201

REACTIONS (2)
  - GRANULOCYTOPENIA [None]
  - LEUKOPENIA [None]
